FAERS Safety Report 14961365 (Version 3)
Quarter: 2018Q2

REPORT INFORMATION
  Report Type: Spontaneous
  Country: JP (occurrence: JP)
  Receive Date: 20180601
  Receipt Date: 20180612
  Transmission Date: 20180711
  Serious: Yes (Hospitalization, Other)
  Sender: FDA-Public Use
  Company Number: JP-ROCHE-2131521

PATIENT
  Age: 63 Year
  Sex: Female

DRUGS (4)
  1. PERJETA [Suspect]
     Active Substance: PERTUZUMAB
     Indication: BREAST CANCER
     Dosage: 420MG/14ML
     Route: 041
     Dates: start: 20150803, end: 201608
  2. HERCEPTIN [Suspect]
     Active Substance: TRASTUZUMAB
     Indication: BREAST CANCER
     Route: 041
     Dates: start: 20150803, end: 201705
  3. KADCYLA [Suspect]
     Active Substance: ADO-TRASTUZUMAB EMTANSINE
     Indication: BREAST CANCER
     Route: 042
     Dates: start: 20170620
  4. DOCETAXEL. [Concomitant]
     Active Substance: DOCETAXEL
     Indication: BREAST CANCER
     Route: 041

REACTIONS (14)
  - Diarrhoea [Recovering/Resolving]
  - Hypoaesthesia [Recovering/Resolving]
  - Oedema peripheral [Recovering/Resolving]
  - Febrile neutropenia [Recovered/Resolved]
  - Nail discolouration [Recovering/Resolving]
  - Feeling cold [Recovering/Resolving]
  - Dysgeusia [Recovering/Resolving]
  - Rash [Recovering/Resolving]
  - Decreased appetite [Recovering/Resolving]
  - Platelet count decreased [Unknown]
  - Pigmentation disorder [Recovering/Resolving]
  - Asthenia [Recovering/Resolving]
  - Malaise [Recovering/Resolving]
  - Rash [Recovering/Resolving]

NARRATIVE: CASE EVENT DATE: 20150803
